FAERS Safety Report 22310705 (Version 1)
Quarter: 2023Q2

REPORT INFORMATION
  Report Type: Spontaneous
  Country: NL (occurrence: NL)
  Receive Date: 20230511
  Receipt Date: 20230511
  Transmission Date: 20230721
  Serious: Yes (Other)
  Sender: FDA-Public Use
  Company Number: NL-TEVA-2023-NL-2885021

PATIENT
  Sex: Female

DRUGS (1)
  1. ALBUTEROL [Suspect]
     Active Substance: ALBUTEROL
     Indication: Product used for unknown indication
     Dosage: DOSE: 100 MICROGRAMS PER DOSE
     Route: 055

REACTIONS (5)
  - Respiratory distress [Unknown]
  - Eye contusion [Unknown]
  - Dizziness [Unknown]
  - Underdose [Unknown]
  - Incorrect dose administered by device [Unknown]
